FAERS Safety Report 5063362-0 (Version None)
Quarter: 2006Q3

REPORT INFORMATION
  Report Type: 
  Country: None (occurrence: None)
  Receive Date: 20060724
  Receipt Date: 20060710
  Transmission Date: 20061208
  Serious: Yes (Other)
  Sender: FDA-Public Use
  Company Number: CHPA2006US06773

PATIENT
  Age: 27 Year
  Sex: Female
  Weight: 113.4 kg

DRUGS (3)
  1. NICOTINE [Suspect]
     Indication: SMOKING CESSATION THERAPY
     Dosage: 7 MG, QD, TRANSDERMAL
     Route: 062
     Dates: end: 20060710
  2. PROZAC [Concomitant]
  3. NEXIUM [Concomitant]

REACTIONS (3)
  - AGEUSIA [None]
  - DYSGEUSIA [None]
  - HYPOAESTHESIA ORAL [None]
